FAERS Safety Report 6760835-7 (Version None)
Quarter: 2010Q2

REPORT INFORMATION
  Report Type: 
  Country: None (occurrence: None)
  Receive Date: 20100607
  Receipt Date: 20100607
  Transmission Date: 20101027
  Serious: Yes (Other)
  Sender: FDA-Public Use
  Company Number: None

PATIENT
  Age: 41 Year
  Sex: Female
  Weight: 68.0396 kg

DRUGS (2)
  1. DYE FREE INFANT IBUPROFEN 50MG PER 1.25 ML TARGET UP + UP [Suspect]
     Indication: ANALGESIC THERAPY
     Dosage: PER CHART Q 6-8 HRS- PO
     Route: 048
     Dates: start: 20100606, end: 20100606
  2. DYE FREE INFANT IBUPROFEN 50MG PER 1.25 ML TARGET UP + UP [Suspect]
     Indication: ANTIPYRESIS
     Dosage: PER CHART Q 6-8 HRS- PO
     Route: 048
     Dates: start: 20100606, end: 20100606

REACTIONS (3)
  - ORAL PAIN [None]
  - PRODUCT QUALITY ISSUE [None]
  - THROAT IRRITATION [None]
